FAERS Safety Report 8365523-1 (Version None)
Quarter: 2012Q2

REPORT INFORMATION
  Report Type: 
  Country: None (occurrence: None)
  Receive Date: 20120516
  Receipt Date: 20120504
  Transmission Date: 20120825
  Serious: Yes (Hospitalization)
  Sender: FDA-Public Use
  Company Number: US-ELI_LILLY_AND_COMPANY-US201205004126

PATIENT
  Age: 34 Year
  Sex: Male

DRUGS (2)
  1. FLUOXETINE HYDROCHLORIDE [Suspect]
     Indication: DEPRESSION
     Dosage: 20 MG, DAY
     Route: 048
  2. FLUOXETINE HYDROCHLORIDE [Suspect]
     Dosage: 60 MG, DAY
     Route: 048

REACTIONS (6)
  - DEPRESSION [None]
  - HOMICIDAL IDEATION [None]
  - BRUXISM [None]
  - TEMPOROMANDIBULAR JOINT SYNDROME [None]
  - SUICIDAL IDEATION [None]
  - HEADACHE [None]
